FAERS Safety Report 5531835-X (Version None)
Quarter: 2007Q4

REPORT INFORMATION
  Report Type: 
  Country: None (occurrence: None)
  Receive Date: 20071128
  Receipt Date: 20071128
  Transmission Date: 20080405
  Serious: Yes (Life-Threatening)
  Sender: FDA-Public Use
  Company Number: None

PATIENT
  Age: 97 Year
  Sex: Male

DRUGS (2)
  1. CLOPIDOGREL [Suspect]
     Indication: TRANSIENT ISCHAEMIC ATTACK
     Dosage: 75MG  EVERY DAY  PO
     Route: 048
     Dates: start: 20050906, end: 20070925
  2. ASPIRIN [Suspect]
     Indication: TRANSIENT ISCHAEMIC ATTACK
     Dosage: 81MG  EVERY DAY  PO
     Route: 048
     Dates: start: 20050906, end: 20070925

REACTIONS (1)
  - GASTRIC HAEMORRHAGE [None]
